FAERS Safety Report 14068308 (Version 4)
Quarter: 2019Q1

REPORT INFORMATION
  Report Type: Spontaneous
  Country: JP (occurrence: JP)
  Receive Date: 20171010
  Receipt Date: 20190219
  Transmission Date: 20190417
  Serious: Yes (Hospitalization, Other)
  Sender: FDA-Public Use
  Company Number: JP-SHIRE-JP201722535AA

PATIENT
  Age: 76 Year
  Sex: Female

DRUGS (12)
  1. AGRYLIN [Suspect]
     Active Substance: ANAGRELIDE HYDROCHLORIDE
     Indication: ESSENTIAL THROMBOCYTHAEMIA
     Dosage: 0.5 MG 2X/DAY:BID, OR 1 MG 2X/DAY:BID (ALTERNATING EVERY OTHER DAY)
     Route: 048
     Dates: start: 20170114, end: 20170912
  2. MYSLEE [Concomitant]
     Active Substance: ZOLPIDEM TARTRATE
     Indication: INSOMNIA
  3. MAGNESIUM OXIDE. [Concomitant]
     Active Substance: MAGNESIUM OXIDE
     Indication: PRODUCT USED FOR UNKNOWN INDICATION
     Dosage: 1DF, 2X/DAY:BID
     Route: 048
  4. ADALAT [Concomitant]
     Active Substance: NIFEDIPINE
     Indication: HYPERTENSION
     Dosage: 20MG,1X/DAY:QD
     Route: 048
  5. BISOPROLOL FUMARATE. [Concomitant]
     Active Substance: BISOPROLOL FUMARATE
     Indication: HYPERTENSION
     Dosage: 25MG,1X/DAY:QD
     Route: 048
  6. CHOREITO                           /07491001/ [Concomitant]
     Active Substance: HERBALS\PHENIRAMINE\PHENYLPROPANOLAMINE\PHENYLTOLOXAMINE\PYRILAMINE
     Indication: PRODUCT USED FOR UNKNOWN INDICATION
     Dosage: 1DF, 3X/DAY:TID
     Route: 048
  7. RINDERON                           /00008501/ [Concomitant]
     Active Substance: BETAMETHASONE
     Indication: PRODUCT USED FOR UNKNOWN INDICATION
     Dosage: UNK, UNKNOWN
     Route: 003
  8. LANSOPRAZOLE. [Concomitant]
     Active Substance: LANSOPRAZOLE
     Indication: CHRONIC GASTRITIS
     Dosage: 15MG, 1X/DAY:QD
     Route: 048
  9. CEFCAPENE PIVOXIL HYDROCHLORIDE [Concomitant]
     Active Substance: CEFCAPENE PIVOXIL HYDROCHLORIDE
     Indication: PRODUCT USED FOR UNKNOWN INDICATION
     Dosage: 100MG, 3X/DAY:TID
     Route: 048
  10. MYSLEE [Concomitant]
     Active Substance: ZOLPIDEM TARTRATE
     Indication: ANXIETY
     Dosage: 5MG, 1X/DAY:QD
     Route: 048
  11. LOCHOL                             /01224502/ [Concomitant]
     Active Substance: FLUVASTATIN SODIUM
     Indication: HYPERLIPIDAEMIA
     Dosage: 10MG, 1X/DAY:QD
     Route: 048
  12. ASPIRIN                            /00002701/ [Concomitant]
     Active Substance: ASPIRIN
     Indication: ESSENTIAL THROMBOCYTHAEMIA
     Dosage: UNK
     Route: 065
     Dates: start: 2016

REACTIONS (6)
  - Cardiac failure congestive [Recovered/Resolved]
  - Ventricular septal defect [Unknown]
  - Headache [Recovering/Resolving]
  - Palpitations [Recovering/Resolving]
  - Atrial fibrillation [Recovering/Resolving]
  - Stress cardiomyopathy [Unknown]

NARRATIVE: CASE EVENT DATE: 201701
